FAERS Safety Report 8762140 (Version 2)
Quarter: 2012Q4

REPORT INFORMATION
  Report Type: 
  Country: US (occurrence: US)
  Receive Date: 20120830
  Receipt Date: 20120907
  Transmission Date: 20130627
  Serious: Yes (Hospitalization)
  Sender: FDA-Public Use
  Company Number: US-ACTELION-A-NJ2012-70796

PATIENT
  Age: 39 Year
  Sex: Female

DRUGS (9)
  1. VENTAVIS [Suspect]
     Indication: PULMONARY ARTERIAL HYPERTENSION
     Dosage: 5 mcg, UNK
     Route: 055
     Dates: start: 2011
  2. LETAIRIS [Concomitant]
  3. NORVIR [Concomitant]
  4. PREZISTA [Concomitant]
  5. TRAZODONE [Concomitant]
  6. TRUVADA [Concomitant]
  7. ZOLOFT [Concomitant]
  8. ADCIRCA [Concomitant]
  9. RISPERDAL [Concomitant]

REACTIONS (2)
  - Bronchitis [Recovering/Resolving]
  - Treatment noncompliance [Unknown]
